FAERS Safety Report 13439086 (Version 1)
Quarter: 2017Q2

REPORT INFORMATION
  Report Type: Report from Study
  Country: FR (occurrence: FR)
  Receive Date: 20170412
  Receipt Date: 20170412
  Transmission Date: 20170830
  Serious: Yes (Other)
  Sender: FDA-Public Use
  Company Number: FR-GILEAD-2017-0267092

PATIENT
  Age: 31 Year
  Sex: Female
  Weight: 59 kg

DRUGS (3)
  1. TENOFOVIR DISOPROXIL FUMARATE. [Suspect]
     Active Substance: TENOFOVIR DISOPROXIL FUMARATE
     Indication: HEPATITIS B
     Dosage: 245 MG, QD
     Route: 048
     Dates: start: 20081014
  2. BEFLAVINE [Concomitant]
     Indication: VITAMIN B2 DEFICIENCY
     Dosage: 10 MG, QD
     Route: 048
     Dates: start: 20080522
  3. LEVOCARNIL                         /00878601/ [Concomitant]
     Indication: CARNITINE DEFICIENCY
     Dosage: 100 MG/ML, TID
     Route: 048
     Dates: start: 20160906

REACTIONS (2)
  - Abortion spontaneous [Recovered/Resolved]
  - Maternal exposure during pregnancy [Recovered/Resolved]

NARRATIVE: CASE EVENT DATE: 20170118
